FAERS Safety Report 11497563 (Version 2)
Quarter: 2015Q4

REPORT INFORMATION
  Report Type: Spontaneous
  Country: PL (occurrence: PL)
  Receive Date: 20150911
  Receipt Date: 20151020
  Transmission Date: 20160304
  Serious: Yes (Hospitalization)
  Sender: FDA-Public Use
  Company Number: PL-PFIZER INC-2015297611

PATIENT
  Sex: Female
  Weight: 70 kg

DRUGS (2)
  1. DALACIN C [Suspect]
     Active Substance: CLINDAMYCIN PHOSPHATE
     Indication: PROPHYLAXIS
     Route: 048
     Dates: start: 20150605, end: 20150606
  2. AUGMENTIN [Suspect]
     Active Substance: AMOXICILLIN\CLAVULANATE POTASSIUM
     Indication: PROPHYLAXIS
     Route: 048
     Dates: start: 20150603, end: 20150603

REACTIONS (3)
  - Erythema [Recovered/Resolved]
  - Rash generalised [Recovered/Resolved]
  - Drug eruption [Recovered/Resolved]
